FAERS Safety Report 8024823-5 (Version None)
Quarter: 2012Q1

REPORT INFORMATION
  Report Type: 
  Country: None (occurrence: None)
  Receive Date: 20120105
  Receipt Date: 20111230
  Transmission Date: 20120608
  Serious: Yes (Hospitalization)
  Sender: FDA-Public Use
  Company Number: US-JNJFOC-20100703447

PATIENT
  Sex: Female
  Weight: 89.8 kg

DRUGS (11)
  1. CALCIUM CARBONATE [Concomitant]
     Route: 048
     Dates: start: 20000106
  2. METHOTREXATE [Concomitant]
     Route: 048
     Dates: start: 20060101
  3. METFORMIN HCL [Concomitant]
     Route: 048
     Dates: start: 20090526
  4. LANTUS [Concomitant]
     Route: 058
     Dates: start: 20100116
  5. FOLIC ACID [Concomitant]
     Route: 048
     Dates: start: 19991208
  6. GOLIMUMAB [Suspect]
     Route: 058
     Dates: start: 20100610
  7. FIBERCON [Concomitant]
     Route: 048
     Dates: start: 20000106
  8. CELEBREX [Concomitant]
     Route: 048
     Dates: start: 20060117
  9. GOLIMUMAB [Suspect]
     Indication: RHEUMATOID ARTHRITIS
     Route: 058
     Dates: start: 20060324
  10. ACETAMINOPHEN [Concomitant]
     Route: 048
     Dates: start: 20051101
  11. LUMIGAN [Concomitant]
     Route: 047
     Dates: start: 20091026

REACTIONS (4)
  - DEHYDRATION [None]
  - TRACHEOBRONCHITIS [None]
  - THROMBOCYTOPENIA [None]
  - URINARY TRACT INFECTION [None]
